FAERS Safety Report 7564528-8 (Version None)
Quarter: 2011Q2

REPORT INFORMATION
  Report Type: 
  Country: None (occurrence: None)
  Receive Date: 20110622
  Receipt Date: 20100507
  Transmission Date: 20111010
  Serious: Yes (Other)
  Sender: FDA-Public Use
  Company Number: US-MYLANLABS-2010S1008198

PATIENT
  Age: 75 Year
  Sex: Male

DRUGS (4)
  1. MIDODRINE HYDROCHLORIDE [Concomitant]
  2. SINEMET [Concomitant]
     Dosage: THE PATIENT WAS USING SINEMENT, 25MG/100MG (1-1/2 TABLET)
  3. LEXAPRO [Concomitant]
  4. CLOZAPINE [Suspect]
     Route: 048
     Dates: end: 20100429

REACTIONS (1)
  - GRANULOCYTOPENIA [None]
